FAERS Safety Report 17795963 (Version 3)
Quarter: 2020Q3

REPORT INFORMATION
  Report Type: Spontaneous
  Country: US (occurrence: US)
  Receive Date: 20200516
  Receipt Date: 20200903
  Transmission Date: 20201102
  Serious: Yes (Other)
  Sender: FDA-Public Use
  Company Number: US-SYNEX-T202002150

PATIENT
  Age: 2 Day
  Sex: Female
  Weight: 2 kg

DRUGS (5)
  1. INOMAX [Suspect]
     Active Substance: NITRIC OXIDE
     Indication: CONGENITAL DIAPHRAGMATIC HERNIA
  2. INOMAX [Suspect]
     Active Substance: NITRIC OXIDE
     Indication: RIGHT-TO-LEFT CARDIAC SHUNT
  3. INOMAX [Suspect]
     Active Substance: NITRIC OXIDE
     Indication: RIGHT VENTRICULAR HYPERTENSION
     Dosage: 20 PPM (INHALATION)
     Route: 055
  4. INOMAX [Suspect]
     Active Substance: NITRIC OXIDE
     Indication: ATRIAL SEPTAL DEFECT
     Dosage: 5 PPM (INHALATION)
     Route: 055
  5. INOMAX [Suspect]
     Active Substance: NITRIC OXIDE
     Indication: OXYGEN SATURATION DECREASED

REACTIONS (3)
  - Lactic acidosis [Recovered/Resolved]
  - Methaemoglobinaemia [Recovering/Resolving]
  - Contraindicated product administered [Unknown]
